FAERS Safety Report 6065154-2 (Version None)
Quarter: 2009Q1

REPORT INFORMATION
  Report Type: 
  Country: None (occurrence: None)
  Receive Date: 20090204
  Receipt Date: 20090105
  Transmission Date: 20090719
  Serious: No
  Sender: FDA-Public Use
  Company Number: US-BAYER-200910024BCC

PATIENT
  Age: 64 Year
  Sex: Male
  Weight: 91 kg

DRUGS (4)
  1. ALEVE (CAPLET) [Suspect]
     Indication: TENDON PAIN
     Dosage: UNIT DOSE: 220 MG
     Dates: start: 20080701, end: 20090103
  2. ASPIRIN TAB [Suspect]
     Indication: PROPHYLAXIS
     Dosage: TOTAL DAILY DOSE: 81 MG  UNIT DOSE: 81 MG
     Dates: end: 20090103
  3. ZANTAC [Concomitant]
  4. PRILOSEC [Concomitant]

REACTIONS (1)
  - BLEEDING TIME PROLONGED [None]
